FAERS Safety Report 17986352 (Version 1)
Quarter: 2020Q3

REPORT INFORMATION
  Report Type: Spontaneous
  Country: US (occurrence: US)
  Receive Date: 20200706
  Receipt Date: 20200706
  Transmission Date: 20201103
  Serious: Yes (Other)
  Sender: FDA-Public Use
  Company Number: US-NAPPMUNDI-GBR-2020-0077596

PATIENT
  Sex: Female

DRUGS (9)
  1. NON?PMN HYDROMORPHONE HCL [Suspect]
     Active Substance: HYDROMORPHONE HYDROCHLORIDE
     Indication: SEDATION
     Dosage: UNK (MAXIMUM DOSE 0.03 MG/KG/H)
     Route: 040
  2. PENTOBARBITAL. [Suspect]
     Active Substance: PENTOBARBITAL
     Indication: SEDATION
     Dosage: UNK
     Route: 040
  3. CLONIDINE. [Suspect]
     Active Substance: CLONIDINE
     Indication: SEDATION
     Dosage: UNK
     Route: 065
  4. LORAZEPAM. [Suspect]
     Active Substance: LORAZEPAM
     Indication: SEDATION
     Dosage: UNK
     Route: 065
  5. MIDAZOLAM. [Suspect]
     Active Substance: MIDAZOLAM
     Indication: SEDATION
     Dosage: UNK (MAXIMUM DOSE 0.21 MG/KG/H)
     Route: 040
  6. CISATRACURIUM. [Suspect]
     Active Substance: CISATRACURIUM
     Indication: SEDATION
     Dosage: UNK (MAXIMUM DOSE 2 MCG/KG/MIN)
     Route: 040
  7. KETAMINE [Suspect]
     Active Substance: KETAMINE
     Indication: SEDATION
     Dosage: UNK
     Route: 040
  8. METHADONE [Suspect]
     Active Substance: METHADONE HYDROCHLORIDE
     Indication: SEDATION
     Dosage: UNK
     Route: 065
  9. DEXMEDETOMIDINE. [Suspect]
     Active Substance: DEXMEDETOMIDINE
     Indication: SEDATION
     Dosage: UNK (MAXIMUM DOSE 1.5 MCG/KG/H)
     Route: 040

REACTIONS (3)
  - Delirium [Recovering/Resolving]
  - Withdrawal syndrome [Recovered/Resolved]
  - Pruritus [Unknown]
